FAERS Safety Report 8284880-8 (Version None)
Quarter: 2012Q2

REPORT INFORMATION
  Report Type: 
  Country: None (occurrence: None)
  Receive Date: 20120413
  Receipt Date: 20111206
  Transmission Date: 20120825
  Serious: No
  Sender: FDA-Public Use
  Company Number: US-ASTRAZENECA-2010SE38567

PATIENT
  Age: 59 Year
  Sex: Female

DRUGS (8)
  1. VALIUM [Concomitant]
  2. MINOCYCLINE HCL [Concomitant]
  3. TYROID [Concomitant]
  4. CODEINE [Concomitant]
  5. NEXIUM [Suspect]
     Route: 048
  6. VASOTEC [Concomitant]
  7. NORVASC [Concomitant]
  8. DIFLUCAN [Concomitant]

REACTIONS (5)
  - MALAISE [None]
  - LYME DISEASE [None]
  - FIBROMYALGIA [None]
  - CYSTITIS [None]
  - FATIGUE [None]
